FAERS Safety Report 9181473 (Version 1)
Quarter: 2013Q1

REPORT INFORMATION
  Report Type: Spontaneous
  Country: US (occurrence: US)
  Receive Date: 20130322
  Receipt Date: 20130322
  Transmission Date: 20140127
  Serious: Yes (Other)
  Sender: FDA-Public Use
  Company Number: US-JNJFOC-20130309528

PATIENT
  Sex: 0

DRUGS (1)
  1. STELARA [Suspect]
     Indication: PRODUCT USED FOR UNKNOWN INDICATION
     Dosage: LAST DOSE WAS 1 MONTH AGO
     Route: 058
     Dates: start: 201010

REACTIONS (2)
  - Implantable defibrillator insertion [Unknown]
  - Flushing [Unknown]
